FAERS Safety Report 5767882-2 (Version None)
Quarter: 2008Q2

REPORT INFORMATION
  Report Type: 
  Country: None (occurrence: None)
  Receive Date: 20080612
  Receipt Date: 20080603
  Transmission Date: 20081010
  Serious: Yes (Hospitalization)
  Sender: FDA-Public Use
  Company Number: JP-PFIZER INC-2008038214

PATIENT
  Sex: Female
  Weight: 28.6 kg

DRUGS (19)
  1. CYTOTEC [Suspect]
     Indication: PEPTIC ULCER
     Route: 048
     Dates: start: 20080401, end: 20080424
  2. CYTOTEC [Suspect]
     Indication: ABDOMINAL PAIN UPPER
  3. ZANTAC [Suspect]
     Indication: PEPTIC ULCER
     Route: 048
     Dates: start: 20080401, end: 20080401
  4. ZANTAC [Suspect]
     Indication: ABDOMINAL PAIN UPPER
  5. PROMAC /JPN/ [Concomitant]
     Route: 048
  6. LEVOTHYROXINE SODIUM [Concomitant]
     Indication: HYPOTHYROIDISM
     Route: 048
  7. ZESULAN [Concomitant]
     Route: 048
  8. ASPIRIN [Concomitant]
     Indication: ARTERIOSCLEROSIS
     Route: 048
  9. OMEPRAL [Concomitant]
  10. PREDONINE [Concomitant]
     Indication: ALVEOLITIS ALLERGIC
     Route: 048
  11. EXCELASE [Concomitant]
     Indication: DYSPEPSIA
     Route: 048
  12. HIBON [Concomitant]
     Indication: HYPOVITAMINOSIS
     Route: 048
  13. PYDOXAL [Concomitant]
     Indication: HYPOVITAMINOSIS
     Route: 048
  14. ROHYPNOL [Concomitant]
     Indication: INSOMNIA
     Route: 048
  15. JUVELA NICOTINATE [Concomitant]
     Indication: OSTEOMALACIA
     Route: 048
  16. CERCINE [Concomitant]
     Indication: INSOMNIA
     Route: 048
  17. ALESION [Concomitant]
     Route: 048
  18. MUCOSTA [Concomitant]
     Indication: GASTRITIS
     Route: 048
  19. RHUBARB [Concomitant]
     Indication: CONSTIPATION
     Route: 048

REACTIONS (1)
  - GRANULOCYTOPENIA [None]
